FAERS Safety Report 17330143 (Version 3)
Quarter: 2020Q2

REPORT INFORMATION
  Report Type: Spontaneous
  Country: US (occurrence: US)
  Receive Date: 20200128
  Receipt Date: 20200528
  Transmission Date: 20200713
  Serious: No
  Sender: FDA-Public Use
  Company Number: US-SA-2020SA015590

PATIENT
  Age: 43 Year
  Sex: Female

DRUGS (1)
  1. AUBAGIO [Suspect]
     Active Substance: TERIFLUNOMIDE
     Indication: MULTIPLE SCLEROSIS
     Dosage: 14 MG, QD
     Route: 048
     Dates: start: 20191213

REACTIONS (5)
  - Nail bed bleeding [Unknown]
  - Unevaluable event [Unknown]
  - Back pain [Unknown]
  - Nail injury [Unknown]
  - Onychoclasis [Unknown]

NARRATIVE: CASE EVENT DATE: 20200430
